FAERS Safety Report 26100347 (Version 1)
Quarter: 2025Q4

REPORT INFORMATION
  Report Type: Spontaneous
  Country: US (occurrence: US)
  Receive Date: 20251128
  Receipt Date: 20251128
  Transmission Date: 20260118
  Serious: No
  Sender: NOVARTIS
  Company Number: US-002147023-NVSC2025US181331

PATIENT
  Sex: Female

DRUGS (1)
  1. VANRAFIA [Suspect]
     Active Substance: ATRASENTAN HYDROCHLORIDE
     Indication: IgA nephropathy
     Dosage: 0.75 MG, QD
     Route: 048
     Dates: start: 20251104

REACTIONS (1)
  - Lacrimation increased [Unknown]
